FAERS Safety Report 22090641 (Version 1)
Quarter: 2023Q1

REPORT INFORMATION
  Report Type: Report from Study
  Country: US (occurrence: US)
  Receive Date: 20230313
  Receipt Date: 20230313
  Transmission Date: 20230418
  Serious: No
  Sender: FDA-Public Use
  Company Number: US-INCYTE CORPORATION-2023IN001410

PATIENT

DRUGS (1)
  1. JAKAFI [Suspect]
     Active Substance: RUXOLITINIB
     Dosage: 5 MILLIGRAM,  TAKE 1 TAB PO IN THE MORNING AND 2 TABS IN THE EVENING, 15MG TOTAL DAILY
     Route: 048

REACTIONS (1)
  - Product availability issue [Unknown]
